FAERS Safety Report 10469246 (Version 1)
Quarter: 2014Q3

REPORT INFORMATION
  Report Type: Report from Study
  Country: JP (occurrence: JP)
  Receive Date: 20140923
  Receipt Date: 20140923
  Transmission Date: 20150326
  Serious: Yes (Death)
  Sender: FDA-Public Use
  Company Number: JP-ROCHE-1465114

PATIENT
  Age: 68 Year
  Sex: Male
  Weight: 49 kg

DRUGS (1)
  1. METHOXY POLYETHYLENE GLYCOL-EPOETIN BETA [Suspect]
     Active Substance: PEGZEREPOETIN ALFA
     Indication: NEPHROGENIC ANAEMIA
     Route: 042
     Dates: start: 20140811, end: 20140826

REACTIONS (2)
  - Hepatic encephalopathy [Fatal]
  - Malaise [Fatal]

NARRATIVE: CASE EVENT DATE: 20140831
